FAERS Safety Report 9201842 (Version 2)
Quarter: 2013Q4

REPORT INFORMATION
  Report Type: Spontaneous
  Country: US (occurrence: US)
  Receive Date: 20130401
  Receipt Date: 20131126
  Transmission Date: 20140711
  Serious: Yes (Other)
  Sender: FDA-Public Use
  Company Number: US-BAYER-2013-038259

PATIENT
  Sex: Female

DRUGS (10)
  1. YAZ [Suspect]
     Dosage: UNK
  2. YASMIN [Suspect]
     Dosage: UNK
  3. OCELLA [Suspect]
     Dosage: UNK
  4. NATALCARE [Concomitant]
  5. PRENATAL VITAMINS [Concomitant]
     Dosage: ONE TO TWO EVERY SIX HOURS AS NEEDED
     Route: 048
  6. MOTRIN [Concomitant]
     Dosage: 600 MG, ONE EVERY SIX HOURS, PRN
     Route: 048
  7. FERROUS SULFATE [Concomitant]
     Dosage: 325 MG, ONE BY MOUTH BID
     Route: 048
  8. FERROUS SULFATE [Concomitant]
     Dosage: 5 G, UNK
  9. APAP W/CODEINE [Concomitant]
     Dosage: 300-30
  10. IBUPROFEN [Concomitant]
     Dosage: 600 MG, UNK

REACTIONS (5)
  - Gallbladder injury [None]
  - Cholecystitis [None]
  - Injury [None]
  - Pain [None]
  - Pain [None]
